FAERS Safety Report 22130412 (Version 1)
Quarter: 2023Q1

REPORT INFORMATION
  Report Type: Spontaneous
  Country: US (occurrence: US)
  Receive Date: 20230323
  Receipt Date: 20230323
  Transmission Date: 20230417
  Serious: No
  Sender: FDA-Public Use
  Company Number: US-MYLANLABS-2023M1014816

PATIENT
  Sex: Male

DRUGS (1)
  1. SEMGLEE (INSULIN GLARGINE-YFGN) [Suspect]
     Active Substance: INSULIN GLARGINE-YFGN
     Indication: Diabetes mellitus
     Dosage: 50 INTERNATIONAL UNIT, QD
     Route: 058

REACTIONS (4)
  - Device defective [Unknown]
  - Product quality issue [Unknown]
  - Device issue [Unknown]
  - Device dispensing error [Unknown]
